FAERS Safety Report 26086421 (Version 1)
Quarter: 2025Q4

REPORT INFORMATION
  Report Type: Spontaneous
  Country: US (occurrence: None)
  Receive Date: 20251125
  Receipt Date: 20251125
  Transmission Date: 20260118
  Serious: No
  Sender: AUROBINDO
  Company Number: US-AUROBINDO-AUR-APL-2025-035282

PATIENT
  Age: 59 Year
  Sex: Male

DRUGS (2)
  1. KHAPZORY [Suspect]
     Active Substance: LEVOLEUCOVORIN DISODIUM
     Indication: Product used for unknown indication
     Dosage: 200 MILLIGRAM
     Route: 065
  2. KHAPZORY [Suspect]
     Active Substance: LEVOLEUCOVORIN DISODIUM
     Dosage: 300 MILLIGRAM
     Route: 065

REACTIONS (1)
  - Therapy change [Unknown]
